FAERS Safety Report 17139661 (Version 6)
Quarter: 2020Q4

REPORT INFORMATION
  Report Type: Report from Study
  Country: US (occurrence: US)
  Receive Date: 20191211
  Receipt Date: 20201109
  Transmission Date: 20210113
  Serious: Yes (Death, Hospitalization, Other)
  Sender: FDA-Public Use
  Company Number: US-ROCHE-2491783

PATIENT
  Age: 65 Year
  Sex: Female
  Weight: 84.9 kg

DRUGS (2)
  1. ATEZOLIZUMAB. [Suspect]
     Active Substance: ATEZOLIZUMAB
     Indication: TRIPLE NEGATIVE BREAST CANCER
     Dosage: ON 06/NOV/2019, SHE RECEIVED MOST RECENT DOSE OF ATEZOLIZUMAB
     Route: 041
     Dates: start: 20190924, end: 20191106
  2. OLAPARIB. [Suspect]
     Active Substance: OLAPARIB
     Indication: TRIPLE NEGATIVE BREAST CANCER
     Dosage: ON 06/NOV/2019, SHE RECEIVED MOST RECENT DOSE OF OLAPARIB
     Route: 048
     Dates: start: 20181227, end: 20191118

REACTIONS (14)
  - Hyperthyroidism [Unknown]
  - Dyspnoea [Recovered/Resolved]
  - Muscular weakness [Recovered/Resolved]
  - Pain [Recovered/Resolved]
  - Aspartate aminotransferase increased [Unknown]
  - Alanine aminotransferase increased [Unknown]
  - Hypokalaemia [Unknown]
  - Anaemia [Recovered/Resolved]
  - Disease progression [Fatal]
  - Dizziness [Recovered/Resolved]
  - Platelet count decreased [Recovered/Resolved]
  - Encephalopathy [Recovered/Resolved]
  - Atelectasis [Recovered/Resolved]
  - Fatigue [Recovered/Resolved]

NARRATIVE: CASE EVENT DATE: 20191107
